FAERS Safety Report 25339874 (Version 1)
Quarter: 2025Q2

REPORT INFORMATION
  Report Type: Report from Study
  Country: US (occurrence: US)
  Receive Date: 20250521
  Receipt Date: 20250521
  Transmission Date: 20250717
  Serious: No
  Sender: SUNOVION
  Company Number: US-SUMITOMO PHARMA SWITZERLAND GMBH-2025SPA006235

PATIENT

DRUGS (2)
  1. ORGOVYX [Suspect]
     Active Substance: RELUGOLIX
     Indication: Prostate cancer
     Route: 048
  2. ORGOVYX [Suspect]
     Active Substance: RELUGOLIX
     Dosage: 120 MG, QD
     Route: 048
     Dates: start: 20250425

REACTIONS (8)
  - Testicular atrophy [Unknown]
  - Nocturia [Unknown]
  - Muscle atrophy [Unknown]
  - Flatulence [Unknown]
  - Bone loss [Unknown]
  - Night sweats [Unknown]
  - Blood glucose increased [Unknown]
  - Hyperhidrosis [Unknown]
